FAERS Safety Report 25544456 (Version 2)
Quarter: 2025Q3

REPORT INFORMATION
  Report Type: Report from Study
  Country: US (occurrence: US)
  Receive Date: 20250711
  Receipt Date: 20250810
  Transmission Date: 20251020
  Serious: Yes (Other)
  Sender: ALEXION PHARMACEUTICALS
  Company Number: US-AstraZeneca-CH-00906180A

PATIENT
  Sex: Female
  Weight: 62.585 kg

DRUGS (5)
  1. CAPIVASERTIB [Suspect]
     Active Substance: CAPIVASERTIB
     Indication: Breast cancer
     Dates: start: 20250430
  2. EXEMESTANE [Concomitant]
     Active Substance: EXEMESTANE
     Route: 065
  3. FASLODEX [Concomitant]
     Active Substance: FULVESTRANT
     Route: 065
  4. ZOLEDRONIC ACID [Concomitant]
     Active Substance: ZOLEDRONIC ACID
     Route: 065
  5. TRIAMCINOLONE [Concomitant]
     Active Substance: TRIAMCINOLONE
     Route: 065

REACTIONS (1)
  - Lymphoma [Not Recovered/Not Resolved]
